FAERS Safety Report 4764634-7 (Version None)
Quarter: 2005Q3

REPORT INFORMATION
  Report Type: 
  Country: None (occurrence: None)
  Receive Date: 20050909
  Receipt Date: 20050907
  Transmission Date: 20060218
  Serious: Yes (Hospitalization)
  Sender: FDA-Public Use
  Company Number: CA-GLAXOSMITHKLINE-A0573522A

PATIENT
  Sex: Female

DRUGS (1)
  1. SEREVENT [Suspect]
     Indication: ASTHMA
     Route: 055

REACTIONS (1)
  - STATUS ASTHMATICUS [None]
